FAERS Safety Report 4553126-6 (Version None)
Quarter: 2005Q1

REPORT INFORMATION
  Report Type: 
  Country: None (occurrence: None)
  Receive Date: 20050114
  Receipt Date: 20050103
  Transmission Date: 20050727
  Serious: Yes (Hospitalization, Other)
  Sender: FDA-Public Use
  Company Number: DE-JNJFOC-20041204999

PATIENT
  Sex: Female
  Weight: 108 kg

DRUGS (5)
  1. RISPERDAL CONSTA [Suspect]
     Indication: SCHIZOPHRENIA
     Route: 030
  2. LEPONEX [Suspect]
     Indication: DRUG USE FOR UNKNOWN INDICATION
     Route: 049
  3. ERGENYL CHRONO [Suspect]
     Route: 049
  4. ERGENYL CHRONO [Suspect]
     Indication: DRUG USE FOR UNKNOWN INDICATION
     Route: 049
  5. XIMOVAN [Concomitant]

REACTIONS (1)
  - THROMBOCYTOPENIA [None]
